FAERS Safety Report 5010823-6 (Version None)
Quarter: 2006Q2

REPORT INFORMATION
  Report Type: 
  Country: None (occurrence: None)
  Receive Date: 20060525
  Receipt Date: 20060518
  Transmission Date: 20061013
  Serious: Yes (Hospitalization)
  Sender: FDA-Public Use
  Company Number: US-JNJFOC-20060504325

PATIENT
  Sex: Female
  Weight: 80.74 kg

DRUGS (14)
  1. REMICADE [Suspect]
     Route: 042
  2. REMICADE [Suspect]
     Indication: RHEUMATOID ARTHRITIS
     Route: 042
  3. METHOTREXATE [Concomitant]
  4. FOLIC ACID [Concomitant]
  5. TRAZODONE HCL [Concomitant]
     Dosage: AT BEDTIME.
  6. CITRACAL [Concomitant]
  7. ULTRAM [Concomitant]
  8. LORTAB [Concomitant]
  9. LORTAB [Concomitant]
     Dosage: 10/500 AT BEDTIME.
  10. QUININE SULFATE [Concomitant]
  11. METFORMIN [Concomitant]
  12. CITALOPRAM HYDROBROMIDE [Concomitant]
  13. PROTONIX [Concomitant]
  14. DIOVAN [Concomitant]

REACTIONS (1)
  - CANDIDIASIS [None]
